FAERS Safety Report 6277537-6 (Version None)
Quarter: 2009Q3

REPORT INFORMATION
  Report Type: 
  Country: None (occurrence: None)
  Receive Date: 20090722
  Receipt Date: 20090709
  Transmission Date: 20100115
  Serious: Yes (Other)
  Sender: FDA-Public Use
  Company Number: US-PFIZER INC-2009240007

PATIENT
  Age: 47 Year
  Sex: Female
  Weight: 53.061 kg

DRUGS (2)
  1. LYRICA [Suspect]
     Indication: FIBROMYALGIA
     Dosage: 75 MG, 2X/DAY
     Dates: start: 20090101, end: 20090706
  2. ACETYLSALICYLIC ACID [Suspect]
     Indication: HEADACHE
     Dosage: UNK
     Dates: start: 20090706, end: 20090706

REACTIONS (4)
  - DIZZINESS [None]
  - FALL [None]
  - HEADACHE [None]
  - MOBILITY DECREASED [None]
